FAERS Safety Report 9707581 (Version 1)
Quarter: 2013Q4

REPORT INFORMATION
  Report Type: Spontaneous
  Country: US (occurrence: US)
  Receive Date: 20131125
  Receipt Date: 20131125
  Transmission Date: 20140711
  Serious: No
  Sender: FDA-Public Use
  Company Number: US-TEVA-375950USA

PATIENT
  Age: 20 Year
  Sex: Female
  Weight: 61.74 kg

DRUGS (1)
  1. PARAGARD 380A [Suspect]
     Indication: CONTRACEPTION
     Route: 015
     Dates: start: 20121022, end: 20121213

REACTIONS (2)
  - Device dislocation [Recovered/Resolved]
  - Device dislocation [Recovered/Resolved]
